FAERS Safety Report 6435008-8 (Version None)
Quarter: 2009Q4

REPORT INFORMATION
  Report Type: 
  Country: None (occurrence: None)
  Receive Date: 20091110
  Receipt Date: 20091027
  Transmission Date: 20100525
  Serious: Yes (Other)
  Sender: FDA-Public Use
  Company Number: PHEH2007US15186

PATIENT
  Sex: Female

DRUGS (30)
  1. ZOMETA [Suspect]
     Indication: NEOPLASM MALIGNANT
     Dosage: 4 MG
     Dates: start: 20050101
  2. PERIDEX [Concomitant]
  3. ANTINEOPLASTIC AGENTS [Concomitant]
  4. BOTOX [Concomitant]
     Dosage: UNK
     Dates: start: 20010101
  5. KLONOPIN [Concomitant]
  6. ALEVE [Concomitant]
  7. HERCEPTIN [Concomitant]
  8. TAMOXIFEN CITRATE [Concomitant]
  9. NEULASTA [Concomitant]
  10. LEXAPRO [Concomitant]
  11. VITAMIN B COMPLEX CAP [Concomitant]
     Dosage: UNK
  12. FISH OIL [Concomitant]
     Dosage: UNK
  13. COQ10 [Concomitant]
     Dosage: UNK
  14. ASCORBIC ACID [Concomitant]
     Dosage: UNK
  15. CLONAZEPAM [Concomitant]
     Dosage: 0.5MG, UP TO TID
  16. HERBAL EXTRACTS NOS [Concomitant]
     Dosage: UNK
  17. ZOLOFT [Concomitant]
     Indication: DEPRESSION
     Dosage: UNK
  18. SKELAXIN [Concomitant]
     Dosage: 2 TABLETS 3 X DAILY
  19. SINEMET [Concomitant]
     Dosage: UNK
  20. PAXIL [Concomitant]
     Indication: DEPRESSION
     Dosage: 10MG
     Dates: start: 20010101
  21. MULTI-VITAMINS [Concomitant]
     Dosage: UNK
  22. CALCIUM [Concomitant]
     Dosage: UNK
  23. CELEXA [Concomitant]
     Dosage: 40 MG
  24. VEETIDS [Concomitant]
     Dosage: 500MG
  25. ZITHROMAX [Concomitant]
     Dosage: 250MG
  26. ALOXI [Concomitant]
     Dosage: .25
     Route: 042
  27. DECADRON                                /CAN/ [Concomitant]
     Dosage: 10 MG
     Route: 042
  28. DOCETAXEL [Concomitant]
     Dosage: UNK
  29. NEULASTA [Concomitant]
     Dosage: 6MG
     Route: 058
  30. TAXOTERE [Concomitant]
     Dosage: UNK

REACTIONS (38)
  - ANAEMIA [None]
  - ANHEDONIA [None]
  - ANXIETY [None]
  - BONE DISORDER [None]
  - BREAST CANCER METASTATIC [None]
  - CERVICOBRACHIAL SYNDROME [None]
  - CHEST DISCOMFORT [None]
  - CHRONIC SINUSITIS [None]
  - COUGH [None]
  - DEFORMITY [None]
  - DENTAL CARIES [None]
  - DEPRESSION [None]
  - DYSGEUSIA [None]
  - EMOTIONAL DISTRESS [None]
  - ENDODONTIC PROCEDURE [None]
  - ERYTHEMA [None]
  - HYPOAESTHESIA [None]
  - HYPOAESTHESIA ORAL [None]
  - HYPOPHAGIA [None]
  - MASS [None]
  - METASTASES TO BONE [None]
  - METASTASES TO LIVER [None]
  - METASTASES TO LUNG [None]
  - MYOFASCIAL PAIN SYNDROME [None]
  - OSTEONECROSIS [None]
  - OSTEORADIONECROSIS [None]
  - PAIN [None]
  - PERIODONTAL DISEASE [None]
  - SENSORY DISTURBANCE [None]
  - SINUS CONGESTION [None]
  - SWELLING [None]
  - SWELLING FACE [None]
  - TOOTH ABSCESS [None]
  - TOOTH DISORDER [None]
  - TOOTH EXTRACTION [None]
  - TOOTH REPAIR [None]
  - TOOTHACHE [None]
  - TUMOUR INVASION [None]
